FAERS Safety Report 18290952 (Version 20)
Quarter: 2021Q3

REPORT INFORMATION
  Report Type: Report from Study
  Country: US (occurrence: US)
  Receive Date: 20200921
  Receipt Date: 20210804
  Transmission Date: 20211014
  Serious: Yes (Hospitalization)
  Sender: FDA-Public Use
  Company Number: NVSC2020US254534

PATIENT
  Age: 32 Year
  Sex: Female
  Weight: 72.56 kg

DRUGS (9)
  1. TREPROSTINIL. [Suspect]
     Active Substance: TREPROSTINIL
     Dosage: 70 NG/KG/MIN, CONT
     Route: 042
     Dates: start: 20200326
  2. TADALAFIL. [Concomitant]
     Active Substance: TADALAFIL
     Indication: PRODUCT USED FOR UNKNOWN INDICATION
     Dosage: UNK
     Route: 065
  3. TREPROSTINIL. [Suspect]
     Active Substance: TREPROSTINIL
     Dosage: 59 NG/KG/MIN ,CONT
     Route: 042
  4. TREPROSTINIL. [Suspect]
     Active Substance: TREPROSTINIL
     Indication: PULMONARY ARTERIAL HYPERTENSION
     Dosage: 51 NG/KG/MIN, CONT
     Route: 042
     Dates: start: 20200326
  5. TREPROSTINIL. [Suspect]
     Active Substance: TREPROSTINIL
     Dosage: 64 NG/KG/MIN, CONT
     Route: 042
  6. TREPROSTINIL. [Suspect]
     Active Substance: TREPROSTINIL
     Dosage: 59 NG/KG/MIN, CONT
     Route: 042
  7. TREPROSTINIL. [Suspect]
     Active Substance: TREPROSTINIL
     Dosage: 69 NG/KG/MIN, CONT
     Route: 042
     Dates: start: 20200326
  8. TREPROSTINIL. [Suspect]
     Active Substance: TREPROSTINIL
     Dosage: 69 NG/KG/MIN, CONT
     Route: 042
  9. REMODULIN [Concomitant]
     Active Substance: TREPROSTINIL
     Indication: PRODUCT USED FOR UNKNOWN INDICATION
     Dosage: UNK
     Route: 065

REACTIONS (20)
  - Iron deficiency [Unknown]
  - Vascular device infection [Unknown]
  - Pneumonia [Unknown]
  - Heart rate increased [Unknown]
  - Hypoxia [Unknown]
  - Infection [Unknown]
  - Device dislocation [Unknown]
  - Blood iron decreased [Unknown]
  - Respiratory failure [Unknown]
  - Syncope [Unknown]
  - Suspected COVID-19 [Unknown]
  - Fluid overload [Unknown]
  - Blood calcium decreased [Unknown]
  - Oxygen saturation decreased [Unknown]
  - Hypokalaemia [Unknown]
  - Blood potassium decreased [Unknown]
  - Cardiac failure [Unknown]
  - COVID-19 pneumonia [Unknown]
  - Tachycardia [Unknown]
  - Fluid retention [Unknown]

NARRATIVE: CASE EVENT DATE: 20200915
